FAERS Safety Report 16072517 (Version 4)
Quarter: 2019Q4

REPORT INFORMATION
  Report Type: Spontaneous
  Country: JP (occurrence: JP)
  Receive Date: 20190314
  Receipt Date: 20191128
  Transmission Date: 20200122
  Serious: Yes (Life-Threatening, Hospitalization, Other)
  Sender: FDA-Public Use
  Company Number: JP-PFIZER INC-2019111522

PATIENT
  Age: 63 Year
  Sex: Female

DRUGS (8)
  1. RITUXIMAB. [Suspect]
     Active Substance: RITUXIMAB
     Indication: PRIMARY BREAST LYMPHOMA
     Dosage: UNK, CYCLIC (FOURTH COURSE)
  2. ETOPOSIDE. [Suspect]
     Active Substance: ETOPOSIDE
     Indication: PRIMARY BREAST LYMPHOMA
     Dosage: UNK, CYCLIC (FOURTH COURSE)
  3. CYTARABINE. [Suspect]
     Active Substance: CYTARABINE
     Indication: PRIMARY BREAST LYMPHOMA
     Dosage: UNK, CYCLIC, (FOURTH COURSE)
  4. ACICLOVIR [Concomitant]
     Active Substance: ACYCLOVIR
     Dosage: 200 MG, 1 TABLET AFTER BREAKFAST
  5. ESOMEPRAZOLE. [Concomitant]
     Active Substance: ESOMEPRAZOLE MAGNESIUM
     Dosage: 10 MG, 1 TABLET AFTER BREAKFAST
  6. CISPLATIN. [Suspect]
     Active Substance: CISPLATIN
     Indication: PRIMARY BREAST LYMPHOMA
     Dosage: UNK, CYCLIC (FOURTH COURSE)
  7. METHYLPREDNISOLONE. [Suspect]
     Active Substance: METHYLPREDNISOLONE
     Indication: PRIMARY BREAST LYMPHOMA
     Dosage: UNK, CYCLIC (FOURTH COURSE)
  8. PREGABALIN. [Concomitant]
     Active Substance: PREGABALIN
     Dosage: 75 MG TABLETS X 2, IN 2 DIVIDED DOSES AFTER BREAKFAST AND BEFORE BED EACH

REACTIONS (2)
  - Encephalitis cytomegalovirus [Recovered/Resolved]
  - Haemophagocytic lymphohistiocytosis [Unknown]
